FAERS Safety Report 4461281-1 (Version None)
Quarter: 2004Q3

REPORT INFORMATION
  Report Type: 
  Country: None (occurrence: None)
  Receive Date: 20040928
  Receipt Date: 20040901
  Transmission Date: 20050211
  Serious: Yes (Other)
  Sender: FDA-Public Use
  Company Number: US-GLAXOSMITHKLINE-A0524237A

PATIENT
  Age: 48 Year
  Sex: Male

DRUGS (5)
  1. LAMICTAL [Suspect]
     Dosage: 25MG PER DAY
     Route: 048
     Dates: start: 20040828, end: 20040901
  2. ATIVAN [Concomitant]
     Indication: ALCOHOL DETOXIFICATION
     Route: 048
     Dates: start: 20040827
  3. THIAMINE [Concomitant]
     Dosage: 100MG PER DAY
     Route: 048
  4. M.V.I. [Concomitant]
     Dosage: 1TAB PER DAY
     Route: 048
  5. FOLATE [Concomitant]
     Dosage: 1MG PER DAY
     Route: 048

REACTIONS (4)
  - CRYING [None]
  - DISTURBANCE IN ATTENTION [None]
  - FLUSHING [None]
  - RASH [None]
